FAERS Safety Report 7727286-X (Version None)
Quarter: 2011Q3

REPORT INFORMATION
  Report Type: 
  Country: None (occurrence: None)
  Receive Date: 20110902
  Receipt Date: 20110901
  Transmission Date: 20111222
  Serious: Yes (Other)
  Sender: FDA-Public Use
  Company Number: CU-BAYER-2011-080250

PATIENT

DRUGS (1)
  1. ULTRAVIST 150 [Suspect]
     Indication: PRODUCT USED FOR UNKNOWN INDICATION
     Dosage: UNK
     Dates: start: 20110831, end: 20110831

REACTIONS (6)
  - COMA [None]
  - OPISTHOTONUS [None]
  - HAEMODYNAMIC INSTABILITY [None]
  - VOMITING [None]
  - PARAESTHESIA [None]
  - MYOCLONUS [None]
